FAERS Safety Report 4273487-5 (Version None)
Quarter: 2004Q1

REPORT INFORMATION
  Report Type: 
  Country: None (occurrence: None)
  Receive Date: 20040119
  Receipt Date: 20031114
  Transmission Date: 20041129
  Serious: Yes (Other)
  Sender: FDA-Public Use
  Company Number: CA-GLAXOSMITHKLINE-A0439856A

PATIENT
  Age: 43 Year
  Sex: Female
  Weight: 54.5 kg

DRUGS (2)
  1. VALTREX [Suspect]
     Indication: ILL-DEFINED DISORDER
     Dosage: 500MG TWICE PER DAY
     Route: 048
     Dates: start: 20030730
  2. PROPRANOLOL [Concomitant]
     Indication: ARRHYTHMIA
     Dosage: 10MG TWICE PER DAY
     Dates: start: 20010708

REACTIONS (3)
  - ARRHYTHMIA [None]
  - CARDIAC DISORDER [None]
  - LOSS OF CONSCIOUSNESS [None]
